FAERS Safety Report 7618499-6 (Version None)
Quarter: 2011Q3

REPORT INFORMATION
  Report Type: 
  Country: None (occurrence: None)
  Receive Date: 20110718
  Receipt Date: 20110713
  Transmission Date: 20111222
  Serious: Yes (Other)
  Sender: FDA-Public Use
  Company Number: US-PFIZER INC-2011159595

PATIENT
  Sex: Female

DRUGS (2)
  1. CELLCEPT [Suspect]
  2. RAPAMUNE [Suspect]

REACTIONS (1)
  - DRUG INEFFECTIVE [None]
